FAERS Safety Report 7096459-4 (Version None)
Quarter: 2010Q4

REPORT INFORMATION
  Report Type: 
  Country: None (occurrence: None)
  Receive Date: 20101111
  Receipt Date: 20101102
  Transmission Date: 20110411
  Serious: Yes (Disabling)
  Sender: FDA-Public Use
  Company Number: GXKR2010GB12368

PATIENT
  Age: 87 Year
  Sex: Male
  Weight: 61.3 kg

DRUGS (8)
  1. TRAMADOL HCL [Suspect]
     Indication: NECK PAIN
     Dosage: 100 MG, BID
     Route: 048
     Dates: start: 20100801, end: 20100901
  2. ACETYLSALICYLIC ACID [Concomitant]
     Dosage: 75 MG, QD
     Route: 065
  3. CITALOPRAM [Concomitant]
     Dosage: 20 MG, QD
     Route: 065
  4. CO-BENELDOPA [Concomitant]
     Dosage: 125 MG, TID
     Route: 065
  5. DUTASTERIDE [Concomitant]
     Dosage: 0.5 MG, QD
     Route: 065
  6. ENTACAPONE [Concomitant]
     Dosage: 200 MG, TID
     Route: 065
  7. EPILIM CHRONO [Concomitant]
     Dosage: 500 MG, QD
     Route: 065
  8. SIMVASTATIN [Concomitant]
     Dosage: 40 MG, QD
     Route: 065

REACTIONS (5)
  - CONDITION AGGRAVATED [None]
  - GAIT DISTURBANCE [None]
  - IMMOBILE [None]
  - PARKINSON'S DISEASE [None]
  - TREMOR [None]
